FAERS Safety Report 16746834 (Version 2)
Quarter: 2020Q2

REPORT INFORMATION
  Report Type: Spontaneous
  Country: US (occurrence: US)
  Receive Date: 20190827
  Receipt Date: 20200409
  Transmission Date: 20200713
  Serious: Yes (Other)
  Sender: FDA-Public Use
  Company Number: US-ASTRAZENECA-2019SF18914

PATIENT
  Sex: Male

DRUGS (3)
  1. BRILINTA [Suspect]
     Active Substance: TICAGRELOR
     Indication: PRODUCT USED FOR UNKNOWN INDICATION
     Route: 048
  2. XTANDI [Interacting]
     Active Substance: ENZALUTAMIDE
     Indication: PROSTATE CANCER
     Dosage: 160.0MG UNKNOWN
     Route: 048
     Dates: start: 201905
  3. XTANDI [Interacting]
     Active Substance: ENZALUTAMIDE
     Indication: PROSTATE CANCER
     Dosage: 80.0MG UNKNOWN
     Route: 048

REACTIONS (5)
  - Nausea [Not Recovered/Not Resolved]
  - Coronary artery disease [Unknown]
  - Drug interaction [Unknown]
  - Prostate cancer [Unknown]
  - Coronary artery occlusion [Recovering/Resolving]
